FAERS Safety Report 6083556-5 (Version None)
Quarter: 2009Q1

REPORT INFORMATION
  Report Type: 
  Country: None (occurrence: None)
  Receive Date: 20090219
  Receipt Date: 20090209
  Transmission Date: 20090719
  Serious: Yes (Other)
  Sender: FDA-Public Use
  Company Number: ZA-ABBOTT-09P-143-0502511-00

PATIENT
  Sex: Female

DRUGS (3)
  1. VALPROIC ACID [Suspect]
     Indication: EPILEPSY
     Route: 048
     Dates: start: 20081101
  2. VALPROIC ACID [Suspect]
     Dosage: DOSE DECREASED
     Route: 065
  3. LAMICTIN [Concomitant]

REACTIONS (2)
  - MYOCLONUS [None]
  - TREMOR [None]
